FAERS Safety Report 4922421-0 (Version None)
Quarter: 2006Q1

REPORT INFORMATION
  Report Type: 
  Country: None (occurrence: None)
  Receive Date: 20060224
  Receipt Date: 20060118
  Transmission Date: 20060701
  Serious: Yes (Death, Hospitalization, Other)
  Sender: FDA-Public Use
  Company Number: US-MERCK-0601USA02428

PATIENT
  Age: 61 Year
  Sex: Male
  Weight: 103 kg

DRUGS (3)
  1. VIOXX [Suspect]
     Route: 048
     Dates: start: 20010201
  2. GLUCOVANCE [Concomitant]
     Route: 065
  3. LANTUS [Concomitant]
     Route: 065

REACTIONS (22)
  - ARTHRALGIA [None]
  - BRONCHITIS [None]
  - CARDIAC ARREST [None]
  - CARDIAC FAILURE CONGESTIVE [None]
  - CARDIOMYOPATHY [None]
  - CEREBRAL ISCHAEMIA [None]
  - CEREBROVASCULAR ACCIDENT [None]
  - CYST [None]
  - DIABETES MELLITUS [None]
  - HYPERSENSITIVITY [None]
  - HYPERTENSION [None]
  - HYPOAESTHESIA [None]
  - HYPOXIA [None]
  - LACTIC ACIDOSIS [None]
  - NEURALGIA [None]
  - ORAL CANDIDIASIS [None]
  - PAIN IN EXTREMITY [None]
  - PNEUMONIA PRIMARY ATYPICAL [None]
  - PULMONARY HYPERTENSION [None]
  - RHINORRHOEA [None]
  - TRANSIENT ISCHAEMIC ATTACK [None]
  - VENTRICULAR FIBRILLATION [None]
